FAERS Safety Report 24379410 (Version 1)
Quarter: 2024Q3

REPORT INFORMATION
  Report Type: Spontaneous
  Country: PL (occurrence: PL)
  Receive Date: 20240930
  Receipt Date: 20240930
  Transmission Date: 20241016
  Serious: Yes (Other)
  Sender: REGENERON
  Company Number: PL-BAYER-2024A137096

PATIENT
  Age: 74 Year
  Sex: Female

DRUGS (1)
  1. EYLEA [Suspect]
     Active Substance: AFLIBERCEPT
     Indication: Neovascular age-related macular degeneration
     Dosage: UNK

REACTIONS (4)
  - Choroidal effusion [Unknown]
  - Blindness [Unknown]
  - Endophthalmitis [Unknown]
  - Visual impairment [Unknown]
